FAERS Safety Report 10036000 (Version 3)
Quarter: 2014Q2

REPORT INFORMATION
  Report Type: Report from Study
  Country: PL (occurrence: PL)
  Receive Date: 20140325
  Receipt Date: 20140507
  Transmission Date: 20141212
  Serious: Yes (Other)
  Sender: FDA-Public Use
  Company Number: PL-ROCHE-1369104

PATIENT
  Age: 68 Year
  Sex: Female
  Weight: 78 kg

DRUGS (8)
  1. PEGASYS [Suspect]
     Indication: HEPATITIS C
     Route: 065
  2. PEGASYS [Suspect]
     Route: 065
  3. PEGASYS [Suspect]
     Route: 065
  4. COPEGUS [Suspect]
     Indication: HEPATITIS C
     Route: 065
  5. COPEGUS [Suspect]
     Route: 065
  6. COPEGUS [Suspect]
     Route: 048
     Dates: start: 20130912, end: 20131129
  7. TELAPREVIR [Suspect]
     Indication: HEPATITIS C
     Route: 065
  8. RAMICOR [Concomitant]
     Route: 048

REACTIONS (7)
  - Anaemia [Recovered/Resolved]
  - Thrombocytopenia [Recovered/Resolved]
  - Epistaxis [Recovered/Resolved]
  - Hepatic failure [Unknown]
  - Ascites [Recovered/Resolved]
  - Oedema peripheral [Recovered/Resolved]
  - Hepatitis C [Unknown]
